FAERS Safety Report 24233185 (Version 1)
Quarter: 2024Q3

REPORT INFORMATION
  Report Type: Spontaneous
  Country: US (occurrence: None)
  Receive Date: 20240821
  Receipt Date: 20240821
  Transmission Date: 20241016
  Serious: Yes (Hospitalization)
  Sender: Public
  Company Number: None

PATIENT
  Sex: Female
  Weight: 94.4 kg

DRUGS (4)
  1. FLUOROURACIL [Suspect]
     Active Substance: FLUOROURACIL
  2. LEUCOVORIN CALCIUM [Concomitant]
  3. NIVOLUMAB [Concomitant]
  4. ELOXATIN [Concomitant]
     Active Substance: OXALIPLATIN

REACTIONS (6)
  - Lymphocyte count decreased [None]
  - White blood cell count increased [None]
  - Sepsis [None]
  - Lethargy [None]
  - Pyrexia [None]
  - Pneumonia [None]

NARRATIVE: CASE EVENT DATE: 20240815
